FAERS Safety Report 9187427 (Version 2)
Quarter: 2012Q4

REPORT INFORMATION
  Report Type: 
  Country: US (occurrence: US)
  Receive Date: 20121121
  Receipt Date: 20121126
  Transmission Date: 20130627
  Serious: Yes (Hospitalization, Other)
  Sender: FDA-Public Use
  Company Number: US-RB-046615-12

PATIENT
  Age: 24 Month

DRUGS (1)
  1. DELSYM [Suspect]
     Indication: PRODUCT USED FOR UNKNOWN INDICATION
     Route: 048
     Dates: start: 20121101

REACTIONS (3)
  - Convulsion [Recovered/Resolved]
  - Pyrexia [Recovered/Resolved]
  - Accidental exposure to product by child [Recovered/Resolved]
